FAERS Safety Report 10370675 (Version 1)
Quarter: 2014Q3

REPORT INFORMATION
  Report Type: Spontaneous
  Country: US (occurrence: None)
  Receive Date: 20140807
  Receipt Date: 20140807
  Transmission Date: 20150326
  Serious: Yes (Other)
  Sender: FDA-Public Use
  Company Number: None

PATIENT
  Age: 63 Year
  Sex: Female
  Weight: 64.5 kg

DRUGS (9)
  1. LEVOTHYROXINE [Concomitant]
     Active Substance: LEVOTHYROXINE
  2. ERGOCALICIFEROL [Concomitant]
  3. GABAPENTIN. [Concomitant]
     Active Substance: GABAPENTIN
  4. DULOXETINE [Concomitant]
     Active Substance: DULOXETINE
  5. MAGNESIUM OXIDE. [Concomitant]
     Active Substance: MAGNESIUM OXIDE
  6. COLISTIMETHATE [Concomitant]
     Active Substance: COLISTIMETHATE SODIUM
  7. RIVAROXABAN [Concomitant]
     Active Substance: RIVAROXABAN
  8. CHOLECALCIFEROL [Concomitant]
     Active Substance: CHOLECALCIFEROL
  9. TIGECYCLINE [Suspect]
     Active Substance: TIGECYCLINE
     Indication: ARTHRITIS BACTERIAL
     Route: 042
     Dates: start: 20140621, end: 20140628

REACTIONS (3)
  - Encephalopathy [None]
  - Dyskinesia [None]
  - Eye disorder [None]

NARRATIVE: CASE EVENT DATE: 20140626
